FAERS Safety Report 5252045-X (Version None)
Quarter: 2007Q1

REPORT INFORMATION
  Report Type: 
  Country: None (occurrence: None)
  Receive Date: 20070223
  Receipt Date: 20070212
  Transmission Date: 20070707
  Serious: Yes (Other)
  Sender: FDA-Public Use
  Company Number: B0459111A

PATIENT
  Sex: 0

DRUGS (3)
  1. ALKERAN [Suspect]
     Indication: STEM CELL TRANSPLANT
     Dosage: 70 MG/M2 / PER DAY / INTRAVENOUS
     Route: 042
  2. MYLERAN [Suspect]
     Indication: STEM CELL TRANSPLANT
     Dosage: 130 MG/M2 / SEE DOSAGE TEXT / INTRAVENOUS
     Route: 042
  3. PHENYTOIN [Concomitant]

REACTIONS (2)
  - ASCITES [None]
  - HEPATOTOXICITY [None]
